FAERS Safety Report 21234782 (Version 1)
Quarter: 2022Q3

REPORT INFORMATION
  Report Type: Spontaneous
  Country: SE (occurrence: SE)
  Receive Date: 20220820
  Receipt Date: 20220820
  Transmission Date: 20221027
  Serious: Yes (Other)
  Sender: FDA-Public Use
  Company Number: None

PATIENT
  Age: 71 Year
  Sex: Male

DRUGS (6)
  1. ZOLEDRONIC ACID [Suspect]
     Active Substance: ZOLEDRONIC ACID
     Indication: Plasma cell myeloma
     Dosage: ZOLEDRONSYRA , UNIT DOSE :4 MG   , FREQUENCY TIME : 4 AS REQUIRED  , DURATION : 2 YEARS
     Dates: start: 201910, end: 202110
  2. REVLIMID [Suspect]
     Active Substance: LENALIDOMIDE
     Indication: Plasma cell myeloma
     Dosage: 25 MG/DAY FOR 21 DAYS, 7 DAYS OFF, ETC. , UNIT DOSE : 25 MG , DURATION : 341 DAYS
     Dates: start: 20191004, end: 20200909
  3. AMLODIPINE [Concomitant]
     Active Substance: AMLODIPINE BESYLATE
     Indication: Product used for unknown indication
  4. FRAGMIN [Concomitant]
     Active Substance: DALTEPARIN SODIUM
     Indication: Product used for unknown indication
     Dosage: UNIT DOSE : 5000 IU , FREQUENCY TIME : 1 DAY  , DURATION : 341 DAYS
     Dates: start: 20191004, end: 20200909
  5. BEHEPAN [Concomitant]
     Indication: Product used for unknown indication
  6. DEXAMETHASONE [Concomitant]
     Active Substance: DEXAMETHASONE
     Indication: Product used for unknown indication
     Dosage: DURATION : 341 DAYS
     Dates: start: 20191004, end: 20200909

REACTIONS (5)
  - Sudden hearing loss [Not Recovered/Not Resolved]
  - Bone pain [Not Recovered/Not Resolved]
  - Gastrointestinal motility disorder [Recovered/Resolved]
  - Tinnitus [Not Recovered/Not Resolved]
  - Myalgia [Not Recovered/Not Resolved]

NARRATIVE: CASE EVENT DATE: 20191001
